FAERS Safety Report 15642240 (Version 1)
Quarter: 2018Q4

REPORT INFORMATION
  Report Type: Spontaneous
  Country: US (occurrence: US)
  Receive Date: 20181121
  Receipt Date: 20181121
  Transmission Date: 20190205
  Serious: Yes (Hospitalization)
  Sender: FDA-Public Use
  Company Number: US-JNJFOC-20181121937

PATIENT
  Age: 63 Year
  Sex: Male
  Weight: 95 kg

DRUGS (1)
  1. INVOKANA [Suspect]
     Active Substance: CANAGLIFLOZIN
     Indication: TYPE 2 DIABETES MELLITUS
     Route: 048
     Dates: start: 20150922

REACTIONS (3)
  - Toe amputation [Recovering/Resolving]
  - Diabetic foot infection [Recovering/Resolving]
  - Necrosis [Recovering/Resolving]

NARRATIVE: CASE EVENT DATE: 2016
